FAERS Safety Report 19265611 (Version 2)
Quarter: 2021Q4

REPORT INFORMATION
  Report Type: Report from Study
  Country: ZA (occurrence: ZA)
  Receive Date: 20210517
  Receipt Date: 20211109
  Transmission Date: 20220303
  Serious: Yes (Death, Other)
  Sender: FDA-Public Use
  Company Number: ZA-NOVARTISPH-NVSC2021ZA102033

PATIENT
  Sex: Male

DRUGS (10)
  1. ENTRESTO [Suspect]
     Active Substance: SACUBITRIL\VALSARTAN
     Indication: Cardiac failure
     Dosage: 100 MG, BID
     Route: 048
  2. ATORVASTATIN [Concomitant]
     Active Substance: ATORVASTATIN
     Indication: Hypercholesterolaemia
     Dosage: 20 MG, QD
     Route: 048
  3. ZOPICLONE [Concomitant]
     Active Substance: ZOPICLONE
     Indication: Insomnia
     Dosage: 7.5 MG, QD(EVERY EVENING)
     Route: 048
  4. CITALOPRAM HYDROBROMIDE [Concomitant]
     Active Substance: CITALOPRAM HYDROBROMIDE
     Indication: Product used for unknown indication
     Dosage: 20 MG, QD
     Route: 065
  5. FUROSEMIDE [Concomitant]
     Active Substance: FUROSEMIDE
     Indication: Product used for unknown indication
     Dosage: 40 MG, QD
     Route: 065
  6. PERINDOPRIL [Concomitant]
     Active Substance: PERINDOPRIL
     Indication: Product used for unknown indication
     Dosage: 4 MG, QD
     Route: 065
  7. BISOPROLOL FUMARATE [Concomitant]
     Active Substance: BISOPROLOL FUMARATE
     Indication: Product used for unknown indication
     Dosage: 5 MG, QD
     Route: 065
  8. WARFARIN [Concomitant]
     Active Substance: WARFARIN
     Indication: Product used for unknown indication
     Dosage: 5 MG, QD
     Route: 065
  9. EUTHYROX [Concomitant]
     Active Substance: LEVOTHYROXINE SODIUM
     Indication: Product used for unknown indication
     Dosage: 50 UG, QD
     Route: 065
  10. SPIRACTIN [Concomitant]
     Indication: Product used for unknown indication
     Dosage: 0.5 DF
     Route: 065

REACTIONS (6)
  - Death [Fatal]
  - Pulmonary oedema [Unknown]
  - Ejection fraction decreased [Unknown]
  - Dyspnoea [Unknown]
  - Oedema peripheral [Unknown]
  - Fatigue [Unknown]
